FAERS Safety Report 7308176-3 (Version None)
Quarter: 2011Q1

REPORT INFORMATION
  Report Type: 
  Country: None (occurrence: None)
  Receive Date: 20110210
  Receipt Date: 20110120
  Transmission Date: 20110831
  Serious: Yes (Death)
  Sender: FDA-Public Use
  Company Number: AE11-015-32

PATIENT
  Age: 42 Year
  Sex: Male

DRUGS (11)
  1. ETHANOL [Suspect]
  2. OXYMORPHONE [Suspect]
  3. TRAZODONE [Suspect]
  4. SSRI [Suspect]
  5. FISH OIL [Suspect]
  6. UNKNOWN DRUG [Suspect]
  7. BENZODIAZEPINE [Suspect]
  8. BARBITURATE [Suspect]
  9. ZOLPIDEM [Suspect]
  10. VALPROIC ACID [Suspect]
  11. LORCET (HYDROCODONE/ACETAMINOPHEN [Suspect]

REACTIONS (4)
  - MULTIPLE DRUG OVERDOSE INTENTIONAL [None]
  - COMPLETED SUICIDE [None]
  - RESPIRATORY ARREST [None]
  - CARDIAC ARREST [None]
